FAERS Safety Report 21458420 (Version 1)
Quarter: 2022Q4

REPORT INFORMATION
  Report Type: Spontaneous
  Country: FR (occurrence: FR)
  Receive Date: 20221014
  Receipt Date: 20221014
  Transmission Date: 20230113
  Serious: Yes (Hospitalization)
  Sender: FDA-Public Use
  Company Number: None

PATIENT
  Age: 56 Year
  Sex: Female
  Weight: 58 kg

DRUGS (3)
  1. SUNITINIB MALATE [Suspect]
     Active Substance: SUNITINIB MALATE
     Indication: Thymoma
     Dosage: UNK
     Dates: start: 202009
  2. PREDNISONE [Concomitant]
     Active Substance: PREDNISONE
  3. MYTELASE [Concomitant]
     Active Substance: AMBENONIUM CHLORIDE
     Indication: Muscular weakness

REACTIONS (2)
  - Myocarditis [Not Recovered/Not Resolved]
  - Off label use [Not Recovered/Not Resolved]

NARRATIVE: CASE EVENT DATE: 20220930
